FAERS Safety Report 22257698 (Version 1)
Quarter: 2023Q2

REPORT INFORMATION
  Report Type: Report from Study
  Country: US (occurrence: US)
  Receive Date: 20230427
  Receipt Date: 20230427
  Transmission Date: 20230721
  Serious: No
  Sender: FDA-Public Use
  Company Number: US-002147023-NVSC2023US093472

PATIENT
  Sex: Female
  Weight: 46.27 kg

DRUGS (4)
  1. COSENTYX [Suspect]
     Active Substance: SECUKINUMAB
     Indication: Ankylosing spondylitis
     Route: 065
  2. FERROUS SULFATE [Suspect]
     Active Substance: FERROUS SULFATE
     Indication: Ankylosing spondylitis
     Route: 065
  3. PANTOPRAZOLE [Suspect]
     Active Substance: PANTOPRAZOLE
     Indication: Ankylosing spondylitis
     Route: 065
  4. PIROXICAM [Suspect]
     Active Substance: PIROXICAM
     Indication: Ankylosing spondylitis
     Route: 065

REACTIONS (1)
  - Drug ineffective [Unknown]
